FAERS Safety Report 23231324 (Version 1)
Quarter: 2023Q4

REPORT INFORMATION
  Report Type: Spontaneous
  Country: US (occurrence: None)
  Receive Date: 20231122
  Receipt Date: 20231122
  Transmission Date: 20240109
  Serious: Yes (Death)
  Sender: FDA-Public Use
  Company Number: None

PATIENT
  Age: 72 Year
  Sex: Female

DRUGS (6)
  1. SIROLIMUS [Suspect]
     Active Substance: SIROLIMUS
     Indication: Organ transplant
     Dosage: FREQUENCY : DAILY;?
     Route: 048
     Dates: start: 20231017
  2. SULFAMETH/TMP TB [Concomitant]
  3. COMPAZINE SUPPOSITORIES [Concomitant]
  4. TRIMETHOPRIM [Concomitant]
     Active Substance: TRIMETHOPRIM
  5. UNSPECIFIED INGREDIENT [Concomitant]
     Active Substance: UNSPECIFIED INGREDIENT
  6. UNSPECIFIED INGREDIENT [Concomitant]
     Active Substance: UNSPECIFIED INGREDIENT

REACTIONS (1)
  - Death [None]
